FAERS Safety Report 5546857-2 (Version None)
Quarter: 2007Q4

REPORT INFORMATION
  Report Type: 
  Country: None (occurrence: None)
  Receive Date: 20071211
  Receipt Date: 20071129
  Transmission Date: 20080405
  Serious: Yes (Congenital Anomaly, Other)
  Sender: FDA-Public Use
  Company Number: US-PFIZER INC-2007101351

PATIENT
  Age: 36 Year
  Sex: Female

DRUGS (7)
  1. ZOLOFT [Suspect]
  2. SYNTHROID [Concomitant]
  3. FOLIC ACID [Concomitant]
  4. LAMICTAL [Concomitant]
     Dosage: DAILY DOSE:600MG
  5. KEPPRA [Concomitant]
     Dosage: DAILY DOSE:1000MG
  6. KLONOPIN [Concomitant]
     Dosage: DAILY DOSE:.5MG
  7. VITAMIN K [Concomitant]

REACTIONS (2)
  - DRUG EXPOSURE DURING PREGNANCY [None]
  - SYNOSTOSIS [None]
